FAERS Safety Report 7991405-0 (Version None)
Quarter: 2011Q4

REPORT INFORMATION
  Report Type: 
  Country: None (occurrence: None)
  Receive Date: 20111219
  Receipt Date: 20111212
  Transmission Date: 20120403
  Serious: Yes (Other)
  Sender: FDA-Public Use
  Company Number: US-BAYER-200838379NA

PATIENT
  Age: 50 Year
  Sex: Female

DRUGS (6)
  1. NEXAVAR [Suspect]
     Indication: BILE DUCT CANCER
     Dosage: 400 MG, BID
     Route: 048
     Dates: start: 20081001
  2. CALCIUM CARBONATE [Concomitant]
  3. MULTI-VITAMIN [Concomitant]
  4. LEXAPRO [Concomitant]
  5. NEXAVAR [Suspect]
     Indication: HEPATIC NEOPLASM MALIGNANT
     Dosage: 200 MG, BID
     Route: 048
     Dates: start: 20080923
  6. ATIVAN [Concomitant]

REACTIONS (13)
  - SINUSITIS [None]
  - RASH [None]
  - CATARACT [None]
  - MUSCLE SPASMS [None]
  - MUSCULOSKELETAL CHEST PAIN [None]
  - VISION BLURRED [None]
  - PAIN IN EXTREMITY [None]
  - ABDOMINAL PAIN [None]
  - HEAD DISCOMFORT [None]
  - GLOSSODYNIA [None]
  - VISUAL IMPAIRMENT [None]
  - DIARRHOEA [None]
  - IMPAIRED HEALING [None]
